FAERS Safety Report 23819594 (Version 1)
Quarter: 2024Q2

REPORT INFORMATION
  Report Type: Spontaneous
  Country: US (occurrence: US)
  Receive Date: 20240506
  Receipt Date: 20240506
  Transmission Date: 20240716
  Serious: No
  Sender: FDA-Public Use
  Company Number: US-AMNEAL PHARMACEUTICALS-2023-AMRX-01314

PATIENT
  Age: 79 Year
  Sex: Female
  Weight: 59.41 kg

DRUGS (2)
  1. DICLOFENAC SODIUM [Suspect]
     Active Substance: DICLOFENAC\DICLOFENAC SODIUM
     Indication: Product used for unknown indication
     Dosage: UNK
     Route: 061
     Dates: start: 20230412, end: 20230417
  2. ABSORBINE [MENTHOL] [Concomitant]
     Indication: Product used for unknown indication
     Route: 061

REACTIONS (1)
  - Lip blister [Not Recovered/Not Resolved]

NARRATIVE: CASE EVENT DATE: 20230413
